FAERS Safety Report 21810721 (Version 14)
Quarter: 2025Q1

REPORT INFORMATION
  Report Type: Spontaneous
  Country: US (occurrence: US)
  Receive Date: 20230103
  Receipt Date: 20250206
  Transmission Date: 20250409
  Serious: Yes (Hospitalization, Other)
  Sender: PFIZER
  Company Number: US-PFIZER INC-PV202200132572

PATIENT
  Age: 76 Year
  Sex: Female
  Weight: 78.458 kg

DRUGS (4)
  1. IBRANCE [Suspect]
     Active Substance: PALBOCICLIB
     Indication: Breast cancer metastatic
     Dosage: 125 MG, DAILY
     Dates: start: 202202
  2. IBRANCE [Suspect]
     Active Substance: PALBOCICLIB
     Route: 048
  3. ANASTROZOLE [Concomitant]
     Active Substance: ANASTROZOLE
     Dates: start: 201503
  4. FASLODEX [Concomitant]
     Active Substance: FULVESTRANT
     Dates: start: 201503

REACTIONS (46)
  - Dysphonia [Recovered/Resolved]
  - Nasopharyngitis [Recovered/Resolved]
  - Neuropathy peripheral [Unknown]
  - Cough [Recovered/Resolved]
  - Full blood count decreased [Unknown]
  - Oropharyngeal pain [Unknown]
  - Nasopharyngitis [Unknown]
  - Restlessness [Unknown]
  - Nervousness [Unknown]
  - Alopecia [Recovered/Resolved]
  - Fatigue [Unknown]
  - Nasal congestion [Unknown]
  - Arthralgia [Recovering/Resolving]
  - Back pain [Not Recovered/Not Resolved]
  - Hypoacusis [Unknown]
  - Fall [Unknown]
  - Skin discolouration [Unknown]
  - Insomnia [Unknown]
  - Headache [Unknown]
  - Contusion [Unknown]
  - Pain [Unknown]
  - Myalgia [Unknown]
  - Epistaxis [Unknown]
  - Arthralgia [Unknown]
  - White blood cell count decreased [Unknown]
  - Vertigo [Recovered/Resolved]
  - Muscle fatigue [Unknown]
  - Nausea [Unknown]
  - Red blood cell count decreased [Unknown]
  - Haemoglobin decreased [Unknown]
  - Arthritis [Unknown]
  - Balance disorder [Unknown]
  - Impaired healing [Unknown]
  - Stress [Unknown]
  - Muscular weakness [Unknown]
  - Feeling abnormal [Unknown]
  - Bursitis [Unknown]
  - Weight decreased [Unknown]
  - Diarrhoea [Unknown]
  - Constipation [Unknown]
  - Somnolence [Unknown]
  - Memory impairment [Unknown]
  - Neoplasm progression [Unknown]
  - Arthropathy [Recovering/Resolving]
  - Exercise tolerance decreased [Unknown]
  - Scan abnormal [Unknown]
